FAERS Safety Report 17975094 (Version 1)
Quarter: 2020Q3

REPORT INFORMATION
  Report Type: Spontaneous
  Country: NL (occurrence: NL)
  Receive Date: 20200702
  Receipt Date: 20200702
  Transmission Date: 20201103
  Serious: Yes (Other)
  Sender: FDA-Public Use
  Company Number: NL-TEVA-2020-NL-1794011

PATIENT
  Age: 51 Year
  Sex: Male

DRUGS (4)
  1. METHYLFENIDAAT [Suspect]
     Active Substance: METHYLPHENIDATE HYDROCHLORIDE
     Indication: ATTENTION DEFICIT HYPERACTIVITY DISORDER
     Dosage: 40MG
     Dates: start: 20010828
  2. MELATONINE [Concomitant]
     Active Substance: MELATONIN
     Dosage: 10MG I.V.M. MELATONIN PRODUCTION DISORDER (LEVELS TOO LOW)
     Dates: start: 20030307
  3. L?THRYPTOFAAN [Concomitant]
     Dosage: 400MG I.V.M. SLEEP DISORDER
     Dates: start: 20021211
  4. MOCLOBEMIDE [Suspect]
     Active Substance: MOCLOBEMIDE
     Indication: DEPRESSION
     Dosage: 300MG
     Dates: start: 20030422

REACTIONS (1)
  - Erectile dysfunction [Unknown]

NARRATIVE: CASE EVENT DATE: 20030615
